FAERS Safety Report 9961215 (Version 1)
Quarter: 2014Q1

REPORT INFORMATION
  Report Type: Spontaneous
  Country: US (occurrence: US)
  Receive Date: 20140305
  Receipt Date: 20140305
  Transmission Date: 20141002
  Serious: No
  Sender: FDA-Public Use
  Company Number: US-009507513-1403USA001758

PATIENT
  Sex: 0
  Weight: 54 kg

DRUGS (1)
  1. NEXPLANON [Suspect]
     Dosage: 68 MG, 1 STANDARD PACKAGE OF PF APPLI OF 1
     Route: 059
     Dates: start: 20130521

REACTIONS (3)
  - Device kink [Unknown]
  - Product quality issue [Unknown]
  - No adverse event [Unknown]
